FAERS Safety Report 6496108-X (Version None)
Quarter: 2009Q4

REPORT INFORMATION
  Report Type: 
  Country: None (occurrence: None)
  Receive Date: 20091214
  Receipt Date: 20090929
  Transmission Date: 20100525
  Serious: No
  Sender: FDA-Public Use
  Company Number: US-BRISTOL-MYERS SQUIBB COMPANY-14800395

PATIENT
  Sex: Female

DRUGS (2)
  1. ABILIFY [Suspect]
  2. CYMBALTA [Concomitant]

REACTIONS (4)
  - FATIGUE [None]
  - FORMICATION [None]
  - RESTLESSNESS [None]
  - SEDATION [None]
